FAERS Safety Report 15808847 (Version 3)
Quarter: 2019Q1

REPORT INFORMATION
  Report Type: Spontaneous
  Country: GR (occurrence: GR)
  Receive Date: 20190110
  Receipt Date: 20190304
  Transmission Date: 20190417
  Serious: Yes (Death, Hospitalization, Other)
  Sender: FDA-Public Use
  Company Number: GR-MYLANLABS-2019M1001850

PATIENT
  Sex: Female
  Weight: .55 kg

DRUGS (6)
  1. POVIDONE-IODINE. [Suspect]
     Active Substance: POVIDONE-IODINE
     Indication: PRODUCT USED FOR UNKNOWN INDICATION
     Dosage: UNK
     Route: 064
  2. METRONIDAZOLE. [Suspect]
     Active Substance: METRONIDAZOLE
     Indication: PRODUCT USED FOR UNKNOWN INDICATION
     Dosage: EIGHT HOURLY FOR 10 DAYS/MOTHER DOSE: THREE TIMES DAILY FOR TEN DAYS
     Route: 064
  3. THYROXINE [Suspect]
     Active Substance: LEVOTHYROXINE
     Indication: HYPOTHYROIDISM
     Dosage: MATERNAL DOSE: 175 UG BID
     Route: 064
  4. AMOXICILLIN. [Suspect]
     Active Substance: AMOXICILLIN
     Indication: PRODUCT USED FOR UNKNOWN INDICATION
     Dosage: EIGHT HOURLY FOR 10 DAYS
     Route: 064
  5. CEFUROXIME. [Suspect]
     Active Substance: CEFUROXIME
     Indication: ENTEROBACTER INFECTION
     Dosage: 750 MG, TID
     Route: 064
  6. BETAMETHASONE. [Suspect]
     Active Substance: BETAMETHASONE
     Indication: PRODUCT USED FOR UNKNOWN INDICATION
     Dosage: MATERNAL DOSE: 12 MG IM WITH A REPEATED DOSE AT 24 H
     Route: 064

REACTIONS (5)
  - Neonatal respiratory distress syndrome [Fatal]
  - Foetal non-stress test abnormal [Unknown]
  - Foetal exposure during pregnancy [Fatal]
  - Low birth weight baby [Unknown]
  - Premature baby [Unknown]
